FAERS Safety Report 4598206-4 (Version None)
Quarter: 2005Q1

REPORT INFORMATION
  Report Type: 
  Country: None (occurrence: None)
  Receive Date: 20050204
  Receipt Date: 20040428
  Transmission Date: 20050727
  Serious: Yes (Other)
  Sender: FDA-Public Use
  Company Number: PHEH2004US04432

PATIENT
  Age: 29 Year
  Sex: Male
  Weight: 86.2 kg

DRUGS (2)
  1. CLOZARIL [Suspect]
     Indication: SCHIZOPHRENIA
     Dosage: 400 MG/DAY ; 200 MG/DAY  : ORAL
     Route: 048
     Dates: start: 20040223, end: 20040419
  2. CLOZARIL [Suspect]
     Indication: SCHIZOPHRENIA
     Dosage: 400 MG/DAY ; 200 MG/DAY  : ORAL
     Route: 048
     Dates: start: 20040419

REACTIONS (4)
  - CONVULSION [None]
  - DYSKINESIA [None]
  - POSTICTAL STATE [None]
  - TONIC CLONIC MOVEMENTS [None]
